FAERS Safety Report 8103009-X (Version None)
Quarter: 2012Q1

REPORT INFORMATION
  Report Type: 
  Country: None (occurrence: None)
  Receive Date: 20120201
  Receipt Date: 20120201
  Transmission Date: 20120608
  Serious: No
  Sender: FDA-Public Use
  Company Number: None

PATIENT
  Age: 34 Year
  Sex: Female
  Weight: 55.338 kg

DRUGS (1)
  1. LEVAQUIN [Suspect]
     Indication: SINUSITIS
     Dosage: 500 MG
     Route: 048
     Dates: start: 20110407, end: 20110415

REACTIONS (10)
  - PAIN [None]
  - MUSCULOSKELETAL PAIN [None]
  - GAIT DISTURBANCE [None]
  - TENDON DISORDER [None]
  - TENDON PAIN [None]
  - NERVE INJURY [None]
  - MAGNESIUM DEFICIENCY [None]
  - ARTHRALGIA [None]
  - TENDONITIS [None]
  - BURNING SENSATION [None]
